FAERS Safety Report 10758854 (Version 2)
Quarter: 2015Q1

REPORT INFORMATION
  Report Type: Spontaneous
  Country: US (occurrence: US)
  Receive Date: 20150203
  Receipt Date: 20150219
  Transmission Date: 20150721
  Serious: No
  Sender: FDA-Public Use
  Company Number: US-BAYER-2015-015957

PATIENT
  Age: 65 Year
  Sex: Male
  Weight: 84 kg

DRUGS (5)
  1. ALEVE [Suspect]
     Active Substance: NAPROXEN SODIUM
     Indication: ANALGESIC THERAPY
     Dosage: 2 DF, PRN
     Route: 048
     Dates: start: 20150129, end: 20150130
  2. ZOCOR [Concomitant]
     Active Substance: SIMVASTATIN
  3. ALEVE [Suspect]
     Active Substance: NAPROXEN SODIUM
  4. CENTRUM [Concomitant]
     Active Substance: VITAMINS
  5. SYNTHROID [Concomitant]
     Active Substance: LEVOTHYROXINE SODIUM

REACTIONS (3)
  - Rash macular [Not Recovered/Not Resolved]
  - Urticaria [Not Recovered/Not Resolved]
  - Expired product administered [Unknown]

NARRATIVE: CASE EVENT DATE: 20150130
